FAERS Safety Report 11782110 (Version 4)
Quarter: 2016Q1

REPORT INFORMATION
  Report Type: Report from Study
  Country: CL (occurrence: CL)
  Receive Date: 20151127
  Receipt Date: 20160317
  Transmission Date: 20160525
  Serious: Yes (Other)
  Sender: FDA-Public Use
  Company Number: CL-ROCHE-1555120

PATIENT
  Age: 47 Year
  Sex: Female

DRUGS (2)
  1. HERCEPTIN [Suspect]
     Active Substance: TRASTUZUMAB
     Indication: BREAST CANCER
     Route: 042
     Dates: start: 20141209
  2. LOSIRAL [Suspect]
     Active Substance: LETROZOLE
     Indication: BREAST CANCER
     Route: 048
     Dates: start: 201504

REACTIONS (15)
  - Tumour ulceration [Recovering/Resolving]
  - Mastitis [Not Recovered/Not Resolved]
  - Metastases to bone [Not Recovered/Not Resolved]
  - Headache [Not Recovered/Not Resolved]
  - Mastitis [Not Recovered/Not Resolved]
  - Drug dose omission [Unknown]
  - Infected neoplasm [Recovering/Resolving]
  - Malaise [Not Recovered/Not Resolved]
  - Acne [Not Recovered/Not Resolved]
  - Mammogram abnormal [Not Recovered/Not Resolved]
  - Spinal disorder [Not Recovered/Not Resolved]
  - Cerebral disorder [Not Recovered/Not Resolved]
  - Bone pain [Not Recovered/Not Resolved]
  - Bone pain [Not Recovered/Not Resolved]
  - Headache [Not Recovered/Not Resolved]

NARRATIVE: CASE EVENT DATE: 20141209
